FAERS Safety Report 6912738-2 (Version None)
Quarter: 2010Q3

REPORT INFORMATION
  Report Type: 
  Country: None (occurrence: None)
  Receive Date: 20100806
  Receipt Date: 20081103
  Transmission Date: 20110219
  Serious: No
  Sender: FDA-Public Use
  Company Number: US-PFIZER INC-2007048273

PATIENT
  Sex: Female

DRUGS (2)
  1. DETROL LA [Suspect]
  2. IBANDRONATE SODIUM [Concomitant]

REACTIONS (2)
  - OEDEMA PERIPHERAL [None]
  - POLLAKIURIA [None]
